FAERS Safety Report 10395947 (Version 1)
Quarter: 2014Q1

REPORT INFORMATION
  Report Type: Spontaneous
  Country: US (occurrence: None)
  Receive Date: 20130724
  Receipt Date: 20130724
  Transmission Date: 20141002
  Serious: Yes (Disabling)
  Sender: FDA-Public Use
  Company Number: PHEH2012US008721

PATIENT
  Age: 55 Year
  Sex: Female
  Weight: 47.6 kg

DRUGS (10)
  1. RECLAST [Suspect]
     Indication: OSTEOPOROSIS
     Dosage: UNK, INTRAVENOUS?04/--/2011 TO UNK
     Route: 042
     Dates: end: 2011
  2. CITRACAL (CALCIUM CITRATE) [Concomitant]
  3. IBUPROFEN [Concomitant]
  4. CELEBREX (CELECOXIB) [Concomitant]
  5. CYCLOBENZAPRINE HYDROCHLORIDE [Concomitant]
  6. VALIUM (DIAZEPAM) [Concomitant]
  7. HYDROCODONE [Concomitant]
  8. CALCIUM [Concomitant]
  9. VICODIN (HYDROCODONE BITARTRATE, PARACETAMOL) [Concomitant]
  10. MUSCLE RELAXANTS (NO INGREDIENTS/SUBSTANCES) [Concomitant]

REACTIONS (11)
  - Myalgia [None]
  - Arthralgia [None]
  - Influenza like illness [None]
  - Oedema peripheral [None]
  - Fatigue [None]
  - Neck pain [None]
  - Musculoskeletal stiffness [None]
  - Muscle spasms [None]
  - Muscle tightness [None]
  - Joint swelling [None]
  - Bone pain [None]
